FAERS Safety Report 21641595 (Version 1)
Quarter: 2022Q4

REPORT INFORMATION
  Report Type: Other
  Country: US (occurrence: None)
  Receive Date: 20221125
  Receipt Date: 20221125
  Transmission Date: 20230113
  Serious: Yes (Hospitalization)
  Sender: FDA-Public Use
  Company Number: US-ROCHE-3220525

PATIENT
  Age: 53 Year
  Sex: Female
  Weight: 95.340 kg

DRUGS (13)
  1. OCREVUS [Suspect]
     Active Substance: OCRELIZUMAB
     Indication: Progressive multiple sclerosis
     Dosage: ON DAY 1 AND DAY 15(28/JAN/2022)
     Route: 042
     Dates: start: 20220111
  2. OCREVUS [Suspect]
     Active Substance: OCRELIZUMAB
     Indication: Relapsing multiple sclerosis
     Dosage: DATE OF TREATMENT:18/AUG/2022
     Route: 042
  3. DIAZEPAM [Concomitant]
     Active Substance: DIAZEPAM
  4. LISINOPRIL [Concomitant]
     Active Substance: LISINOPRIL
  5. PROVIGIL [Concomitant]
     Active Substance: MODAFINIL
  6. GABAPENTIN [Concomitant]
     Active Substance: GABAPENTIN
  7. OXYBUTYNIN [Concomitant]
     Active Substance: OXYBUTYNIN
  8. MYRBETRIQ [Concomitant]
     Active Substance: MIRABEGRON
  9. SIMVASTATIN [Concomitant]
     Active Substance: SIMVASTATIN
  10. VITAMIN D2 [Concomitant]
     Active Substance: ERGOCALCIFEROL
  11. LORAZEPAM [Concomitant]
     Active Substance: LORAZEPAM
  12. ALBUTEROL [Concomitant]
     Active Substance: ALBUTEROL
  13. ASPIRIN [Concomitant]
     Active Substance: ASPIRIN

REACTIONS (2)
  - Back pain [Recovered/Resolved]
  - COVID-19 [Recovered/Resolved]

NARRATIVE: CASE EVENT DATE: 20220701
